FAERS Safety Report 10173108 (Version 1)
Quarter: 2014Q2

REPORT INFORMATION
  Report Type: Spontaneous
  Country: US (occurrence: None)
  Receive Date: 20140425
  Receipt Date: 20140425
  Transmission Date: 20141212
  Serious: Yes (Hospitalization)
  Sender: FDA-Public Use
  Company Number: 1310382

PATIENT
  Sex: Female

DRUGS (3)
  1. ZELBORAF [Suspect]
     Indication: METASTASES TO CENTRAL NERVOUS SYSTEM
     Dosage: 1440 MG (720 MG, 2 IN 1 D)
     Dates: start: 201204, end: 201304
  2. YERVOY (IPILIMUMAB) [Concomitant]
  3. PREDNISONE (PREDNISONE) [Concomitant]

REACTIONS (28)
  - Alopecia [None]
  - Nausea [None]
  - Dysgeusia [None]
  - Flatulence [None]
  - Abdominal distension [None]
  - Diarrhoea [None]
  - Abdominal pain upper [None]
  - Acrochordon [None]
  - Skin papilloma [None]
  - Eye pain [None]
  - Depression [None]
  - Vision blurred [None]
  - Dry eye [None]
  - Ocular hyperaemia [None]
  - Rash pruritic [None]
  - Rash generalised [None]
  - Chills [None]
  - Pyrexia [None]
  - Vomiting [None]
  - Fatigue [None]
  - Weight decreased [None]
  - Heart rate increased [None]
  - Arthralgia [None]
  - Pain in extremity [None]
  - Pain in extremity [None]
  - Headache [None]
  - Hyperkeratosis [None]
  - Decreased appetite [None]
